FAERS Safety Report 10487251 (Version 1)
Quarter: 2014Q3

REPORT INFORMATION
  Report Type: Spontaneous
  Country: US (occurrence: None)
  Receive Date: 20140908
  Receipt Date: 20140908
  Transmission Date: 20150326
  Serious: Yes (Hospitalization)
  Sender: FDA-Public Use
  Company Number: 404178

PATIENT
  Sex: Male
  Weight: 104.3 kg

DRUGS (9)
  1. TRICOR [Concomitant]
     Active Substance: FENOFIBRATE
  2. LITHIUM [Concomitant]
     Active Substance: LITHIUM CARBONATE
  3. NARDIL [Concomitant]
     Active Substance: PHENELZINE SULFATE
  4. METFORMIN [Concomitant]
     Active Substance: METFORMIN HYDROCHLORIDE
  5. LEVOTHYROXINE [Concomitant]
     Active Substance: LEVOTHYROXINE
  6. LANTUS [Concomitant]
     Active Substance: INSULIN GLARGINE
  7. APIDRA [Concomitant]
     Active Substance: INSULIN GLULISINE
  8. FENOFIBRATE. [Concomitant]
     Active Substance: FENOFIBRATE
  9. VICTOZA [Suspect]
     Active Substance: LIRAGLUTIDE
     Indication: TYPE 2 DIABETES MELLITUS
     Route: 058
     Dates: start: 201309, end: 20131009

REACTIONS (3)
  - Pancreatitis acute [None]
  - Weight decreased [None]
  - Decreased appetite [None]

NARRATIVE: CASE EVENT DATE: 2013
